FAERS Safety Report 6600271-7 (Version None)
Quarter: 2010Q1

REPORT INFORMATION
  Report Type: 
  Country: None (occurrence: None)
  Receive Date: 20100217
  Receipt Date: 20100205
  Transmission Date: 20100710
  Serious: Yes (Other)
  Sender: FDA-Public Use
  Company Number: SPV1-2010-00219

PATIENT

DRUGS (1)
  1. VYVANSE [Suspect]
     Dosage: 1X/ DAY; QD, TRANSPLACENTAL
     Route: 064
     Dates: end: 20100201

REACTIONS (4)
  - ARTERIOSCLEROSIS [None]
  - FOETAL CARDIAC DISORDER [None]
  - MATERNAL DRUGS AFFECTING FOETUS [None]
  - PREGNANCY [None]
